FAERS Safety Report 18719650 (Version 1)
Quarter: 2021Q1

REPORT INFORMATION
  Report Type: Spontaneous
  Country: US (occurrence: US)
  Receive Date: 20210109
  Receipt Date: 20210109
  Transmission Date: 20210419
  Serious: No
  Sender: FDA-Public Use
  Company Number: US-ASTRAZENECA-2020SF68321

PATIENT
  Sex: Female

DRUGS (1)
  1. BEVESPI AEROSPHERE [Suspect]
     Active Substance: FORMOTEROL FUMARATE\GLYCOPYRROLATE
     Indication: CHRONIC OBSTRUCTIVE PULMONARY DISEASE
     Dosage: TWO DOSES TWO TIMES A DAY
     Route: 055
     Dates: end: 20201209

REACTIONS (4)
  - Product prescribing error [Unknown]
  - Product packaging quantity issue [Unknown]
  - Wheezing [Unknown]
  - Product dose omission issue [Unknown]
